FAERS Safety Report 17606561 (Version 8)
Quarter: 2021Q4

REPORT INFORMATION
  Report Type: Report from Study
  Country: PL (occurrence: PL)
  Receive Date: 20200331
  Receipt Date: 20211206
  Transmission Date: 20220303
  Serious: Yes (Death, Life-Threatening, Hospitalization, Disabling)
  Sender: FDA-Public Use
  Company Number: PL-CELGENE-POL-20200309758

PATIENT
  Age: 70 Year
  Sex: Female
  Weight: 84.5 kg

DRUGS (37)
  1. LENALIDOMIDE [Suspect]
     Active Substance: LENALIDOMIDE
     Indication: Plasma cell myeloma
     Dosage: 25 MILLIGRAM
     Route: 048
     Dates: start: 20180813, end: 20180819
  2. LENALIDOMIDE [Suspect]
     Active Substance: LENALIDOMIDE
     Dosage: 25 MILLIGRAM
     Route: 048
     Dates: start: 20180910, end: 20180916
  3. DEXAMETHASONE [Suspect]
     Active Substance: DEXAMETHASONE
     Indication: Plasma cell myeloma
     Dosage: 20 MILLIGRAM
     Route: 065
     Dates: start: 20180813, end: 20180813
  4. DEXAMETHASONE [Suspect]
     Active Substance: DEXAMETHASONE
     Dosage: 20 MILLIGRAM
     Route: 048
     Dates: start: 20180914, end: 20180914
  5. BORTEZOMIB [Suspect]
     Active Substance: BORTEZOMIB
     Indication: Plasma cell myeloma
     Route: 058
     Dates: start: 20180813, end: 20180813
  6. BORTEZOMIB [Suspect]
     Active Substance: BORTEZOMIB
     Route: 058
     Dates: start: 20180913, end: 20180913
  7. ISATUXIMAB [Suspect]
     Active Substance: ISATUXIMAB
     Indication: Plasma cell myeloma
     Dosage: 10 MILLIGRAM/KILOGRAM
     Route: 041
     Dates: start: 20180813, end: 20180813
  8. ISATUXIMAB [Suspect]
     Active Substance: ISATUXIMAB
     Dosage: 10 MILLIGRAM/KILOGRAM
     Route: 041
     Dates: start: 20180910, end: 20180910
  9. Ranitydyne [Concomitant]
     Indication: Prophylaxis
     Dosage: 150
     Route: 048
     Dates: start: 20180813, end: 20180813
  10. Ranitydyne [Concomitant]
     Dosage: 150
     Route: 048
     Dates: start: 20180820, end: 20180820
  11. Ranitydyne [Concomitant]
     Dosage: 150
     Route: 048
     Dates: start: 20180903, end: 20180903
  12. Ranitydyne [Concomitant]
     Dosage: 150
     Route: 048
     Dates: start: 20180910, end: 20180910
  13. ACETAMINOPHEN [Concomitant]
     Active Substance: ACETAMINOPHEN
     Indication: Product used for unknown indication
     Dosage: 1000
     Route: 048
     Dates: start: 20180813, end: 20180813
  14. ACETAMINOPHEN [Concomitant]
     Active Substance: ACETAMINOPHEN
     Dosage: 1000
     Route: 048
     Dates: start: 20180820, end: 20180820
  15. ACETAMINOPHEN [Concomitant]
     Active Substance: ACETAMINOPHEN
     Dosage: 1000
     Route: 048
     Dates: start: 20180903, end: 20180903
  16. ACETAMINOPHEN [Concomitant]
     Active Substance: ACETAMINOPHEN
     Dosage: 1000
     Route: 048
     Dates: start: 20180910, end: 20180910
  17. ACETAMINOPHEN [Concomitant]
     Active Substance: ACETAMINOPHEN
     Dosage: 1000
     Route: 048
     Dates: start: 20180926, end: 20180926
  18. CLEMASTINE FUMARATE [Concomitant]
     Active Substance: CLEMASTINE FUMARATE
     Indication: Product used for unknown indication
     Dosage: 2
     Route: 041
     Dates: start: 20180813, end: 20180813
  19. CLEMASTINE FUMARATE [Concomitant]
     Active Substance: CLEMASTINE FUMARATE
     Dosage: 2
     Route: 041
     Dates: start: 20180820, end: 20180820
  20. CLEMASTINE FUMARATE [Concomitant]
     Active Substance: CLEMASTINE FUMARATE
     Dosage: 2
     Route: 041
     Dates: start: 20180903, end: 20180903
  21. CLEMASTINE FUMARATE [Concomitant]
     Active Substance: CLEMASTINE FUMARATE
     Dosage: 2
     Route: 041
     Dates: start: 20180910, end: 20180910
  22. CLEMASTINE FUMARATE [Concomitant]
     Active Substance: CLEMASTINE FUMARATE
     Dosage: 2
     Route: 041
     Dates: start: 20180926, end: 20180926
  23. ASPIRIN [Concomitant]
     Active Substance: ASPIRIN
     Indication: Product used for unknown indication
     Route: 048
     Dates: start: 2012, end: 20180926
  24. BISOPROLOL [Concomitant]
     Active Substance: BISOPROLOL
     Indication: Product used for unknown indication
     Route: 065
     Dates: start: 2014
  25. FUROSEMIDE [Concomitant]
     Active Substance: FUROSEMIDE
     Indication: Product used for unknown indication
     Route: 065
     Dates: start: 2014
  26. SPIRONOLACTONE [Concomitant]
     Active Substance: SPIRONOLACTONE
     Indication: Product used for unknown indication
     Route: 065
     Dates: start: 2014
  27. LEVOTHYROXINUM NATRICUM [Concomitant]
     Indication: Product used for unknown indication
     Route: 065
     Dates: start: 2005
  28. OLANZAPINUM [Concomitant]
     Indication: Product used for unknown indication
     Route: 065
     Dates: start: 201312
  29. PREGABALIN [Concomitant]
     Active Substance: PREGABALIN
     Indication: Product used for unknown indication
     Route: 065
     Dates: start: 201312
  30. ENOXAPARIN [Concomitant]
     Active Substance: ENOXAPARIN
     Indication: Prophylaxis
     Route: 058
     Dates: start: 20180607, end: 20180926
  31. ACYCLOVIR [Concomitant]
     Active Substance: ACYCLOVIR
     Indication: Product used for unknown indication
     Route: 065
     Dates: start: 20180813
  32. TRIMETHOPRIM [Concomitant]
     Active Substance: TRIMETHOPRIM
     Indication: Product used for unknown indication
     Route: 065
     Dates: start: 20180813
  33. ALPRAZOLAM [Concomitant]
     Active Substance: ALPRAZOLAM
     Indication: Product used for unknown indication
     Route: 065
     Dates: start: 201312
  34. MEROPENEM [Concomitant]
     Active Substance: MEROPENEM
     Indication: Product used for unknown indication
     Route: 041
     Dates: start: 20181005
  35. VANCOMYCIN [Concomitant]
     Active Substance: VANCOMYCIN
     Indication: Product used for unknown indication
     Route: 065
     Dates: start: 20181005
  36. VANCOMYCIN [Concomitant]
     Active Substance: VANCOMYCIN
     Route: 065
     Dates: start: 20180926, end: 20180926
  37. BISEPTOL [Concomitant]
     Active Substance: SULFAMETHOXAZOLE\TRIMETHOPRIM
     Indication: Product used for unknown indication
     Route: 065
     Dates: start: 20180813

REACTIONS (7)
  - Death [Fatal]
  - Cardiac arrest [Fatal]
  - Duodenal ulcer haemorrhage [Recovered/Resolved]
  - Duodenal ulcer haemorrhage [Recovered/Resolved]
  - Pneumonia [Not Recovered/Not Resolved]
  - Cardio-respiratory arrest [Recovered/Resolved]
  - Atrial fibrillation [Not Recovered/Not Resolved]

NARRATIVE: CASE EVENT DATE: 20180820
